FAERS Safety Report 22164336 (Version 2)
Quarter: 2023Q2

REPORT INFORMATION
  Report Type: Spontaneous
  Country: US (occurrence: US)
  Receive Date: 20230403
  Receipt Date: 20230510
  Transmission Date: 20230722
  Serious: No
  Sender: FDA-Public Use
  Company Number: US-BoehringerIngelheim-2023-BI-229040

PATIENT
  Age: 70 Year
  Sex: Female

DRUGS (1)
  1. STIOLTO RESPIMAT [Suspect]
     Active Substance: OLODATEROL HYDROCHLORIDE\TIOTROPIUM BROMIDE MONOHYDRATE
     Indication: Chronic obstructive pulmonary disease
     Dosage: 2.5+2.5MCG 60 TRADE
     Dates: start: 20230326

REACTIONS (2)
  - Dyspnoea [Not Recovered/Not Resolved]
  - Drug delivery system malfunction [Unknown]

NARRATIVE: CASE EVENT DATE: 20230329
